FAERS Safety Report 15077570 (Version 2)
Quarter: 2018Q3

REPORT INFORMATION
  Report Type: Spontaneous
  Country: US (occurrence: US)
  Receive Date: 20180627
  Receipt Date: 20180725
  Transmission Date: 20181010
  Serious: Yes (Other)
  Sender: FDA-Public Use
  Company Number: US-NOVOPROD-604761

PATIENT
  Age: 70 Year
  Sex: Male
  Weight: 77.98 kg

DRUGS (2)
  1. LEVEMIR [Suspect]
     Active Substance: INSULIN DETEMIR
     Dosage: 20 UNITS (NCREASED DOSE AFTER THE EVENT)
     Route: 058
  2. LEVEMIR [Suspect]
     Active Substance: INSULIN DETEMIR
     Indication: TYPE 2 DIABETES MELLITUS
     Dosage: 10 UNITS BEFORE THE EVENT
     Route: 058
     Dates: start: 2016

REACTIONS (3)
  - Device failure [Recovered/Resolved]
  - Blood glucose increased [Recovered/Resolved]
  - Renal injury [Unknown]

NARRATIVE: CASE EVENT DATE: 20180501
